FAERS Safety Report 8443246-8 (Version None)
Quarter: 2012Q2

REPORT INFORMATION
  Report Type: 
  Country: None (occurrence: None)
  Receive Date: 20120617
  Receipt Date: 20120604
  Transmission Date: 20120825
  Serious: Yes (Hospitalization)
  Sender: FDA-Public Use
  Company Number: IE-BRISTOL-MYERS SQUIBB COMPANY-16663452

PATIENT
  Age: 83 Year
  Sex: Female

DRUGS (4)
  1. FLUCLOXACILLIN [Suspect]
     Route: 042
  2. ACETAMINOPHEN [Suspect]
  3. IRBESARTAN [Suspect]
  4. METFORMIN HCL [Suspect]

REACTIONS (1)
  - METABOLIC ACIDOSIS [None]
